FAERS Safety Report 18564507 (Version 1)
Quarter: 2020Q4

REPORT INFORMATION
  Report Type: Spontaneous
  Country: US (occurrence: US)
  Receive Date: 20201130
  Receipt Date: 20201130
  Transmission Date: 20210114
  Serious: Yes (Other)
  Sender: FDA-Public Use
  Company Number: None

PATIENT
  Age: 4 Month
  Sex: Male

DRUGS (2)
  1. SYNAGIS [Suspect]
     Active Substance: PALIVIZUMAB
     Indication: RESPIRATORY SYNCYTIAL VIRUS INFECTION
     Dosage: ?          OTHER FREQUENCY:28 DAYS;?
     Route: 030
     Dates: start: 20201116
  2. SYNAGIS [Concomitant]
     Active Substance: PALIVIZUMAB
     Dates: start: 20201116

REACTIONS (7)
  - Milk allergy [None]
  - Diarrhoea [None]
  - Cough [None]
  - Decreased appetite [None]
  - Wheezing [None]
  - Condition aggravated [None]
  - Respiratory rate increased [None]

NARRATIVE: CASE EVENT DATE: 20201130
